FAERS Safety Report 8767357 (Version 1)
Quarter: 2012Q4

REPORT INFORMATION
  Report Type: Report from Study
  Country: US (occurrence: US)
  Receive Date: 20120904
  Receipt Date: 20120904
  Transmission Date: 20130627
  Serious: Yes (Other)
  Sender: FDA-Public Use
  Company Number: US-TEVA-356475USA

PATIENT
  Age: 38 Year
  Sex: Female

DRUGS (4)
  1. NUVIGIL [Suspect]
     Indication: NARCOLEPSY
     Dosage: 250 Milligram Daily;
     Route: 048
     Dates: start: 2010
  2. NUVIGIL [Suspect]
     Indication: BIPOLAR DISORDER
     Dosage: 125 Milligram Daily;
     Route: 048
     Dates: start: 2012
  3. LAMICTAL [Concomitant]
  4. EFFEXOR [Concomitant]

REACTIONS (1)
  - Abortion spontaneous [Unknown]
